FAERS Safety Report 6719950-6 (Version None)
Quarter: 2010Q2

REPORT INFORMATION
  Report Type: 
  Country: None (occurrence: None)
  Receive Date: 20100511
  Receipt Date: 20100505
  Transmission Date: 20101027
  Serious: Yes (Death)
  Sender: FDA-Public Use
  Company Number: TR-ELI_LILLY_AND_COMPANY-TR201005001158

PATIENT
  Sex: Female

DRUGS (4)
  1. HUMULIN R [Suspect]
     Indication: GESTATIONAL DIABETES
     Dosage: 4 IU, EACH MORNING
     Route: 064
     Dates: end: 20100401
  2. HUMULIN R [Suspect]
     Dosage: 4 IU, OTHER
     Route: 064
     Dates: end: 20100401
  3. HUMULIN R [Suspect]
     Dosage: 4 IU, EACH EVENING
     Route: 064
     Dates: end: 20100401
  4. HUMULIN N [Suspect]
     Indication: GESTATIONAL DIABETES
     Dosage: 3 IU, DAILY (1/D)
     Route: 064
     Dates: end: 20100401

REACTIONS (5)
  - DEATH NEONATAL [None]
  - DRUG EXPOSURE DURING PREGNANCY [None]
  - MATERNAL DRUGS AFFECTING FOETUS [None]
  - OMPHALORRHEXIS [None]
  - PREMATURE BABY [None]
